FAERS Safety Report 21519715 (Version 4)
Quarter: 2023Q2

REPORT INFORMATION
  Report Type: Spontaneous
  Country: IT (occurrence: IT)
  Receive Date: 20221028
  Receipt Date: 20230621
  Transmission Date: 20230722
  Serious: Yes (Other)
  Sender: FDA-Public Use
  Company Number: IT-CELLTRION INC.-2022IT017256

PATIENT

DRUGS (9)
  1. RITUXIMAB [Suspect]
     Active Substance: RITUXIMAB
     Indication: Splenic marginal zone lymphoma
     Dosage: 10MG/ML (ROUTE: ROA-20045000)
     Route: 042
  2. RITUXIMAB [Suspect]
     Active Substance: RITUXIMAB
     Dosage: UNK, CYCLIC
     Route: 042
  3. OMALIZUMAB [Concomitant]
     Active Substance: OMALIZUMAB
     Indication: Splenic marginal zone lymphoma
     Dosage: 600 MG (15 DAYS AND 2 DAYS BEFORE DD WAS REATTEMPTED)
     Route: 058
  4. OMALIZUMAB [Concomitant]
     Active Substance: OMALIZUMAB
     Indication: Premedication
  5. MONTELUKAST [Concomitant]
     Active Substance: MONTELUKAST SODIUM
     Indication: Premedication
     Dosage: 10 MG
     Route: 065
  6. FAMOTIDINE [Concomitant]
     Active Substance: FAMOTIDINE
     Indication: Premedication
     Dosage: 40 MG
     Route: 065
  7. CHLORPHENIRAMINE MALEATE [Concomitant]
     Active Substance: CHLORPHENIRAMINE MALEATE
     Indication: Premedication
     Dosage: 10 MG
     Route: 065
  8. ACETAMINOPHEN [Concomitant]
     Active Substance: ACETAMINOPHEN
     Indication: Premedication
     Dosage: 1000 MILLIGRAM
     Route: 065
  9. METHYLPREDNISOLONE [Concomitant]
     Active Substance: METHYLPREDNISOLONE
     Indication: Premedication
     Dosage: 40 MILLIGRAM
     Route: 065

REACTIONS (7)
  - Hypersensitivity [Recovered/Resolved]
  - Dyspnoea [Unknown]
  - Angioedema [Unknown]
  - Urticaria [Unknown]
  - Drug specific antibody present [Unknown]
  - Intentional product use issue [Unknown]
  - Off label use [Unknown]
